FAERS Safety Report 23772305 (Version 1)
Quarter: 2024Q2

REPORT INFORMATION
  Report Type: Spontaneous
  Country: US (occurrence: US)
  Receive Date: 20240423
  Receipt Date: 20240423
  Transmission Date: 20240716
  Serious: Yes (Hospitalization)
  Sender: FDA-Public Use
  Company Number: US-BAYER-2024A054144

PATIENT
  Age: 71 Year
  Sex: Female

DRUGS (3)
  1. ALKA-SELTZER HEARTBURN RELIEFCHEWS [Suspect]
     Active Substance: CALCIUM CARBONATE
     Indication: Gastrointestinal disorder
     Dosage: 4 CHEWS, QD
     Route: 048
     Dates: start: 20240330, end: 20240330
  2. ALKA-SELTZER HEARTBURN RELIEFCHEWS [Suspect]
     Active Substance: CALCIUM CARBONATE
     Indication: Gastrointestinal disorder
     Dosage: 2 CHWES, QD
     Route: 048
     Dates: start: 20240410, end: 20240410
  3. CHOLESTEROL REDUCER [Concomitant]
     Indication: Blood cholesterol increased

REACTIONS (7)
  - Malaise [Recovered/Resolved]
  - Vomiting [Recovered/Resolved]
  - Diarrhoea [Recovered/Resolved]
  - Dehydration [Recovered/Resolved]
  - Malaise [Recovered/Resolved]
  - Abdominal discomfort [Recovered/Resolved]
  - Drug ineffective [Unknown]

NARRATIVE: CASE EVENT DATE: 20240330
